FAERS Safety Report 10182602 (Version 1)
Quarter: 2014Q2

REPORT INFORMATION
  Report Type: Spontaneous
  Country: GB (occurrence: None)
  Receive Date: 20140516
  Receipt Date: 20140516
  Transmission Date: 20141212
  Serious: Yes (Hospitalization, Other)
  Sender: FDA-Public Use
  Company Number: AUR-APL-2014-05540

PATIENT
  Age: 46 Year
  Sex: Female
  Weight: 80.73 kg

DRUGS (6)
  1. RISPERIDONE (RISPERIDONE) [Suspect]
     Indication: BIPOLAR I DISORDER
     Route: 048
     Dates: start: 20060515, end: 20130504
  2. CO-CODAMOL (PANADEINE CO) [Concomitant]
  3. QUETIAPINE (QUETIAPINE) [Concomitant]
  4. SIMVASTATIN (SIMVASTATIN) [Concomitant]
  5. VENLAFAXINE (VENLAFAXINE) [Concomitant]
  6. VITAMIN D3 (COLECALCIFEROL) [Concomitant]

REACTIONS (6)
  - Osteopenia [None]
  - Hyperparathyroidism [None]
  - Intervertebral disc degeneration [None]
  - RET gene mutation [None]
  - Intervertebral disc protrusion [None]
  - Weight increased [None]
